FAERS Safety Report 9631098 (Version 2)
Quarter: 2013Q4

REPORT INFORMATION
  Report Type: Spontaneous
  Country: GB (occurrence: None)
  Receive Date: 20131015
  Receipt Date: 20131028
  Transmission Date: 20140711
  Serious: Yes (Other)
  Sender: FDA-Public Use
  Company Number: KAD201310-001331

PATIENT
  Age: 48 Year
  Sex: Female

DRUGS (3)
  1. RIBAVIRIN (RIBAVIRIN) [Suspect]
     Indication: HEPATITIS C
     Route: 048
     Dates: start: 20121016
  2. PEGINTERERON ALFA-2B [Suspect]
     Indication: HEPATITIS C
     Dosage: POWDER FOR INJECTION, ONCE WEEKLY, SUBCUTANEOUS
     Route: 058
     Dates: start: 20121016
  3. TELAPREVIR (TELAPREVIR) [Suspect]
     Indication: HEPATITIS C
     Dosage: TABLET, 750 MG, THRICE DAILY, ORAL
     Route: 048
     Dates: start: 20121016

REACTIONS (9)
  - Anaemia [None]
  - Anal haemorrhage [None]
  - Anal pruritus [None]
  - Dyspnoea [None]
  - Hypoaesthesia oral [None]
  - Oedema peripheral [None]
  - Proctalgia [None]
  - Rash [None]
  - Blister [None]
